FAERS Safety Report 25080103 (Version 1)
Quarter: 2025Q1

REPORT INFORMATION
  Report Type: Spontaneous
  Country: US (occurrence: US)
  Receive Date: 20250314
  Receipt Date: 20250314
  Transmission Date: 20250408
  Serious: Yes (Hospitalization)
  Sender: CALLIDITAS THERAPEUTICS AB
  Company Number: US-Calliditas-2025CAL00690

PATIENT
  Age: 73 Year
  Sex: Female

DRUGS (16)
  1. TARPEYO [Suspect]
     Active Substance: BUDESONIDE
     Indication: IgA nephropathy
     Route: 048
     Dates: start: 20241024
  2. ALBUTEROL [Concomitant]
     Active Substance: ALBUTEROL
  3. BREO ELLIPTA [Concomitant]
     Active Substance: FLUTICASONE FUROATE\VILANTEROL TRIFENATATE
  4. BUMETANIDE [Concomitant]
     Active Substance: BUMETANIDE
  5. COREG [Concomitant]
     Active Substance: CARVEDILOL
  6. DOCUSATE [Concomitant]
     Active Substance: DOCUSATE
  7. ERGOCALCIFEROL [Concomitant]
     Active Substance: ERGOCALCIFEROL
  8. GABAPENTIN [Concomitant]
     Active Substance: GABAPENTIN
  9. JARDIANCE [Concomitant]
     Active Substance: EMPAGLIFLOZIN
  10. LEVEMIR [Concomitant]
     Active Substance: INSULIN DETEMIR
  11. LISINOPRIL [Concomitant]
     Active Substance: LISINOPRIL
  12. NIFEDIPINE [Concomitant]
     Active Substance: NIFEDIPINE
  13. OMEPRAZOLE [Concomitant]
     Active Substance: OMEPRAZOLE
  14. MONTELUKAST [Concomitant]
     Active Substance: MONTELUKAST
  15. VISTARIL (HYDROXYZINE HYDROCHLORIDE) [Concomitant]
     Active Substance: HYDROXYZINE HYDROCHLORIDE
  16. ZYRTEC [Concomitant]
     Active Substance: CETIRIZINE HYDROCHLORIDE

REACTIONS (4)
  - Swelling [Not Recovered/Not Resolved]
  - Blood pressure increased [Not Recovered/Not Resolved]
  - Pneumonia [Recovering/Resolving]
  - Fatigue [Not Recovered/Not Resolved]
